FAERS Safety Report 8327274-9 (Version None)
Quarter: 2012Q2

REPORT INFORMATION
  Report Type: 
  Country: None (occurrence: None)
  Receive Date: 20120502
  Receipt Date: 20120418
  Transmission Date: 20120825
  Serious: Yes (Other)
  Sender: FDA-Public Use
  Company Number: SE-AMGEN-SWESP2012017240

PATIENT
  Age: 63 Year
  Sex: Female

DRUGS (1)
  1. ENBREL [Suspect]
     Indication: RHEUMATOID ARTHRITIS
     Dosage: 50 MG, UNK
     Dates: start: 20110301, end: 20120301

REACTIONS (9)
  - INSOMNIA [None]
  - RASH [None]
  - HAEMORRHAGE SUBCUTANEOUS [None]
  - ARTHRITIS [None]
  - GASTROINTESTINAL HAEMORRHAGE [None]
  - MUCOSAL DRYNESS [None]
  - WOUND [None]
  - PAIN IN EXTREMITY [None]
  - INCREASED TENDENCY TO BRUISE [None]
